FAERS Safety Report 6153917-4 (Version None)
Quarter: 2009Q2

REPORT INFORMATION
  Report Type: 
  Country: None (occurrence: None)
  Receive Date: 20090410
  Receipt Date: 20090330
  Transmission Date: 20091009
  Serious: Yes (Death)
  Sender: FDA-Public Use
  Company Number: 2009AP001244

PATIENT
  Age: 32 Year
  Sex: Male

DRUGS (6)
  1. TRAZODONE HYDROCHLORIDE [Suspect]
  2. CITALOPRAM HYDROBROMIDE [Suspect]
  3. SEROQUEL [Suspect]
  4. BENADRYL [Suspect]
  5. ZYPREXA [Suspect]
     Dosage: 10 MG; QD
  6. DILANTIN [Suspect]

REACTIONS (3)
  - COMPLETED SUICIDE [None]
  - DILATATION VENTRICULAR [None]
  - DRUG TOXICITY [None]
